FAERS Safety Report 24772446 (Version 1)
Quarter: 2024Q4

REPORT INFORMATION
  Report Type: Report from Study
  Country: US (occurrence: US)
  Receive Date: 20241224
  Receipt Date: 20241224
  Transmission Date: 20250114
  Serious: Yes (Other)
  Sender: ABBVIE
  Company Number: US-ABBVIE-6060728

PATIENT
  Age: 77 Year
  Sex: Male

DRUGS (1)
  1. VENCLEXTA [Suspect]
     Active Substance: VENETOCLAX
     Indication: Chronic lymphocytic leukaemia
     Dosage: TAKE 4 TABLETS (400MG) BY MOUTH EVERY DAY ON DAYS 1-28 OF A 28 DAY CYCLE?STRENGTH- 100 MG
     Route: 048
     Dates: end: 202410

REACTIONS (1)
  - Surgery [Unknown]
